APPROVED DRUG PRODUCT: GUAIFENESIN AND DEXTROMETHORPHAN HYDROBROMIDE
Active Ingredient: DEXTROMETHORPHAN HYDROBROMIDE; GUAIFENESIN
Strength: 30MG;600MG
Dosage Form/Route: TABLET, EXTENDED RELEASE;ORAL
Application: A207602 | Product #002
Applicant: PERRIGO R AND D CO
Approved: Mar 5, 2018 | RLD: No | RS: No | Type: OTC